FAERS Safety Report 8966659 (Version 2)
Quarter: 2013Q1

REPORT INFORMATION
  Report Type: Spontaneous
  Country: IT (occurrence: None)
  Receive Date: 20121206
  Receipt Date: 20130108
  Transmission Date: 20140127
  Serious: Yes (Hospitalization)
  Sender: FDA-Public Use
  Company Number: DSA_61107_2012

PATIENT
  Age: 51 Year
  Sex: Female

DRUGS (1)
  1. VASERETIC [Suspect]
     Indication: HYPERTENSION
     Dosage: 20 MG + 12.5 MG
     Route: 048
     Dates: start: 20120920, end: 20120920

REACTIONS (7)
  - Nausea [None]
  - Vomiting [None]
  - Confusional state [None]
  - Blood pressure systolic decreased [None]
  - Blood pressure diastolic increased [None]
  - Drug intolerance [None]
  - Diarrhoea [None]
